FAERS Safety Report 9379800 (Version 1)
Quarter: 2013Q3

REPORT INFORMATION
  Report Type: Spontaneous
  Country: US (occurrence: None)
  Receive Date: 20130701
  Receipt Date: 20130701
  Transmission Date: 20140515
  Serious: Yes (Hospitalization, Disabling)
  Sender: FDA-Public Use
  Company Number: None

PATIENT
  Age: 59 Year
  Sex: Male
  Weight: 47.63 kg

DRUGS (2)
  1. LIPITOR [Suspect]
     Route: 048
     Dates: start: 2002
  2. ATORVASTATIN [Suspect]
     Route: 048
     Dates: start: 201209

REACTIONS (3)
  - Gait disturbance [None]
  - Activities of daily living impaired [None]
  - Hyperhidrosis [None]
